FAERS Safety Report 6413562-X (Version None)
Quarter: 2009Q4

REPORT INFORMATION
  Report Type: 
  Country: None (occurrence: None)
  Receive Date: 20091026
  Receipt Date: 20091014
  Transmission Date: 20100525
  Serious: Yes (Hospitalization)
  Sender: FDA-Public Use
  Company Number: PHHY2009CA44871

PATIENT
  Sex: Female

DRUGS (11)
  1. DIOVAN [Suspect]
     Dosage: 1 DF (160 MG) DAILY
     Route: 048
  2. CATAPRES [Concomitant]
  3. PLAVIX [Concomitant]
     Dosage: 75 MG, UNK
  4. SYNTHROID [Concomitant]
     Dosage: 0.075 MG, UNK
  5. TIAZAC [Concomitant]
     Dosage: 360 MG, UNK
  6. CRESTOR [Concomitant]
     Dosage: 20 MG, UNK
  7. IMDUR [Concomitant]
     Dosage: 60 MG, UNK
  8. SINGULAIR [Concomitant]
     Dosage: 60 MG, UNK
  9. DIOVAN HCT [Concomitant]
     Dosage: 160/12.5 MG, UNK
  10. APO-FLURAZEPAM [Concomitant]
     Dosage: 30 MG, UNK
  11. CARBOCAL D [Concomitant]
     Dosage: 400 MG, UNK

REACTIONS (3)
  - ARTHRALGIA [None]
  - GAIT DISTURBANCE [None]
  - SYNOVIAL CYST [None]
